FAERS Safety Report 22146641 (Version 1)
Quarter: 2023Q1

REPORT INFORMATION
  Report Type: Spontaneous
  Country: US (occurrence: None)
  Receive Date: 20230327
  Receipt Date: 20230327
  Transmission Date: 20230417
  Serious: Yes (Hospitalization)
  Sender: FDA-Public Use
  Company Number: None

PATIENT
  Age: 61 Year
  Sex: Female

DRUGS (3)
  1. GAMMAGARD LIQUID [Suspect]
     Active Substance: HUMAN IMMUNOGLOBULIN G
     Indication: Immunodeficiency common variable
     Dosage: OTHER STRENGTH : 10GM/100M;?OTHER QUANTITY : 10GM;?FREQUENCY : WEEKLY;?
     Route: 058
     Dates: start: 20230226
  2. ESTRADIOL [Suspect]
     Active Substance: ESTRADIOL
  3. MAXALT [Suspect]
     Active Substance: RIZATRIPTAN BENZOATE

REACTIONS (2)
  - Cerebrovascular accident [None]
  - Visual impairment [None]

NARRATIVE: CASE EVENT DATE: 20230226
